FAERS Safety Report 10761283 (Version 1)
Quarter: 2015Q1

REPORT INFORMATION
  Report Type: Spontaneous
  Country: US (occurrence: None)
  Receive Date: 20150203
  Receipt Date: 20150203
  Transmission Date: 20150721
  Serious: No
  Sender: FDA-Public Use
  Company Number: None

PATIENT
  Sex: Female

DRUGS (5)
  1. TAMAXIFEN [Concomitant]
  2. TYSABRI [Concomitant]
     Active Substance: NATALIZUMAB
  3. AMPYRA [Suspect]
     Active Substance: DALFAMPRIDINE
  4. IBUPROFEN. [Concomitant]
     Active Substance: IBUPROFEN
  5. ALBUTEROL. [Concomitant]
     Active Substance: ALBUTEROL

REACTIONS (2)
  - Balance disorder [None]
  - Fall [None]
